FAERS Safety Report 20321619 (Version 1)
Quarter: 2022Q1

REPORT INFORMATION
  Report Type: Spontaneous
  Country: US (occurrence: US)
  Receive Date: 20220111
  Receipt Date: 20220111
  Transmission Date: 20220423
  Serious: No
  Sender: FDA-Public Use
  Company Number: US-GILEAD-2022-0564601

PATIENT
  Age: 38 Year
  Sex: Male

DRUGS (2)
  1. SOFOSBUVIR\VELPATASVIR [Suspect]
     Active Substance: SOFOSBUVIR\VELPATASVIR
     Indication: Chronic hepatitis C
     Dosage: 1 DOSAGE FORM, QD
     Route: 048
  2. INVEGA [Concomitant]
     Active Substance: PALIPERIDONE

REACTIONS (3)
  - Lip swelling [Recovered/Resolved]
  - Mental impairment [Not Recovered/Not Resolved]
  - Product dose omission in error [Unknown]
